FAERS Safety Report 9801724 (Version 3)
Quarter: 2014Q2

REPORT INFORMATION
  Report Type: Spontaneous
  Country: US (occurrence: US)
  Receive Date: 20140107
  Receipt Date: 20140417
  Transmission Date: 20141212
  Serious: Yes (Death, Other)
  Sender: FDA-Public Use
  Company Number: US-GILEAD-2014-0091381

PATIENT
  Sex: Female

DRUGS (4)
  1. LETAIRIS [Suspect]
     Indication: PRODUCT USED FOR UNKNOWN INDICATION
     Dosage: 5 MG, QD
     Route: 048
     Dates: start: 20111003
  2. LETAIRIS [Suspect]
     Dosage: 10 MG, QD
     Route: 048
     Dates: start: 20130913
  3. REMODULIN [Concomitant]
  4. ADCIRCA [Concomitant]

REACTIONS (6)
  - Disease progression [Fatal]
  - Oxygen saturation decreased [Unknown]
  - Visual impairment [Unknown]
  - Visual impairment [Unknown]
  - Presyncope [Unknown]
  - Dizziness [Unknown]
